FAERS Safety Report 14923333 (Version 2)
Quarter: 2018Q3

REPORT INFORMATION
  Report Type: Spontaneous
  Country: US (occurrence: US)
  Receive Date: 20180522
  Receipt Date: 20180911
  Transmission Date: 20181010
  Serious: No
  Sender: FDA-Public Use
  Company Number: US-BAYER-2017-187798

PATIENT
  Sex: Male

DRUGS (1)
  1. KOGENATE FS [Suspect]
     Active Substance: ANTIHEMOPHILIC FACTOR, HUMAN RECOMBINANT
     Indication: FACTOR VIII DEFICIENCY
     Dosage: 2000 U, PRN. TOTAL DOSES AND LAST DOSE PRIOR THE EVENT WERE NOT PROVIDED.
     Route: 042
     Dates: start: 20170727

REACTIONS (2)
  - Arthropathy [None]
  - Adverse event [None]
